FAERS Safety Report 16835800 (Version 3)
Quarter: 2019Q4

REPORT INFORMATION
  Report Type: Report from Study
  Country: US (occurrence: US)
  Receive Date: 20190920
  Receipt Date: 20191010
  Transmission Date: 20200122
  Serious: Yes (Hospitalization, Other)
  Sender: FDA-Public Use
  Company Number: US-TESAROUBC-2019-TSO00717-US

PATIENT
  Age: 57 Year
  Sex: Female

DRUGS (20)
  1. MORPHINE SULFATE. [Concomitant]
     Active Substance: MORPHINE SULFATE
     Indication: BREAKTHROUGH PAIN
     Dosage: 15 MG, 1 IN 1 AS REQUIRED
     Route: 048
     Dates: start: 20190122
  2. ONDANSETRON [Concomitant]
     Active Substance: ONDANSETRON
     Indication: VOMITING
     Dosage: 4 MG, 3 IN 1 AS REQUIRED
     Route: 048
     Dates: start: 20190228
  3. IBUPROFEN. [Concomitant]
     Active Substance: IBUPROFEN
     Indication: BACK PAIN
  4. POTASSIUM CHLORIDE. [Concomitant]
     Active Substance: POTASSIUM CHLORIDE
     Indication: PRODUCT USED FOR UNKNOWN INDICATION
     Dosage: 2, 1 IN A DAY
     Route: 048
     Dates: start: 20190228
  5. COLESTIPOL [Concomitant]
     Active Substance: COLESTIPOL
     Indication: DIARRHOEA
     Dosage: 2 G, IN 1 DAY
     Route: 048
     Dates: start: 20190228
  6. LOPERAMIDE [Concomitant]
     Active Substance: LOPERAMIDE
     Indication: DIARRHOEA
     Dosage: 4 MG, 1 IN 1 AS REQUIRED
     Route: 048
     Dates: start: 20190228
  7. LIDOCAINE. [Concomitant]
     Active Substance: LIDOCAINE
     Indication: PRODUCT USED FOR UNKNOWN INDICATION
     Dosage: 2 %, PRN
     Route: 061
     Dates: start: 20180131
  8. MORPHINE SULFATE. [Concomitant]
     Active Substance: MORPHINE SULFATE
     Indication: CANCER PAIN
     Dosage: 30 MG, 1 IN 1 DAY
     Route: 048
     Dates: start: 20190123
  9. MAGNESIUM OXIDE. [Concomitant]
     Active Substance: MAGNESIUM OXIDE
     Indication: PRODUCT USED FOR UNKNOWN INDICATION
     Dosage: 1000 MG, QD
     Route: 048
     Dates: start: 20190228
  10. ATORVASTATIN CALCIUM. [Concomitant]
     Active Substance: ATORVASTATIN CALCIUM
     Indication: HYPERLIPIDAEMIA
     Dosage: 40 MG, 1 IN 1 D
     Route: 048
     Dates: start: 2018
  11. ONDANSETRON [Concomitant]
     Active Substance: ONDANSETRON
     Indication: NAUSEA
     Dosage: 4 MG, 1 IN 1 AS REQUIRED
     Route: 048
     Dates: start: 201712
  12. NIRAPARIB [Suspect]
     Active Substance: NIRAPARIB
     Indication: OVARIAN CANCER
     Dosage: 200 MG, QD (ON DAYS 1-28 OF EACH 28 -DAY CYCLE)
     Route: 048
     Dates: start: 20190110, end: 20190114
  13. COBIMETINIB. [Suspect]
     Active Substance: COBIMETINIB
     Indication: OVARIAN CANCER
     Dosage: 60 MG, QD (DAYS 1-21 OF EACH 28-DAY CYCLE)
     Route: 048
     Dates: start: 20190110, end: 20190114
  14. TRAMADOL. [Concomitant]
     Active Substance: TRAMADOL
     Indication: BACK PAIN
     Dosage: 50 MG, 1 AS NECESSARY
     Route: 048
     Dates: start: 20181218
  15. ATEZOLIZUMAB. [Suspect]
     Active Substance: ATEZOLIZUMAB
     Indication: OVARIAN CANCER
     Dosage: 840 MG, 1 IN 2 WK
     Route: 048
     Dates: start: 20190110
  16. MEDROL [Concomitant]
     Active Substance: METHYLPREDNISOLONE
     Indication: SKIN INFECTION
     Dosage: 4 MG, UNK
     Route: 048
     Dates: start: 20190228
  17. GABAPENTIN. [Concomitant]
     Active Substance: GABAPENTIN
     Indication: NEUROPATHY PERIPHERAL
     Dosage: 900 MG, 1 IN 1 DAY
     Route: 048
     Dates: start: 2018
  18. IBUPROFEN. [Concomitant]
     Active Substance: IBUPROFEN
     Indication: ABDOMINAL PAIN
     Dosage: 800 MG, PRN
     Route: 048
     Dates: start: 201712
  19. ZOFRAN [Concomitant]
     Active Substance: ONDANSETRON HYDROCHLORIDE
     Indication: PREMEDICATION
     Dosage: 8 MG, 1 IN 1 AS REQUIRED
     Route: 042
     Dates: start: 20190110, end: 20190110
  20. LEVOFLOXACIN. [Concomitant]
     Active Substance: LEVOFLOXACIN
     Indication: PNEUMONIA
     Dosage: 750 MG, 1 IN 1 D
     Route: 048
     Dates: start: 20190228

REACTIONS (2)
  - Vomiting [Recovered/Resolved]
  - Clostridium difficile infection [Recovered/Resolved]

NARRATIVE: CASE EVENT DATE: 20190115
